FAERS Safety Report 8735069 (Version 3)
Quarter: 2013Q1

REPORT INFORMATION
  Report Type: Spontaneous
  Country: US (occurrence: US)
  Receive Date: 20120821
  Receipt Date: 20130121
  Transmission Date: 20140127
  Serious: No
  Sender: FDA-Public Use
  Company Number: US-009507513-1207USA010327

PATIENT
  Sex: Female
  Weight: 62.59 kg

DRUGS (5)
  1. MIRALAX [Suspect]
     Indication: CONSTIPATION
     Dosage: UNK, UNKNOWN
     Route: 048
  2. MIRALAX [Suspect]
     Indication: MEDICAL OBSERVATION
  3. DULCOLAX [Concomitant]
     Indication: CONSTIPATION
     Dosage: UNK, UNKNOWN
  4. SENNATAB [Concomitant]
     Indication: CONSTIPATION
     Dosage: UNK, UNKNOWN
  5. MINERAL OIL [Concomitant]
     Indication: CONSTIPATION
     Dosage: UNK, UNKNOWN

REACTIONS (1)
  - Drug ineffective [Unknown]
